FAERS Safety Report 9952996 (Version 1)
Quarter: 2014Q1

REPORT INFORMATION
  Report Type: Report from Study
  Country: US (occurrence: US)
  Receive Date: 20140304
  Receipt Date: 20140304
  Transmission Date: 20141002
  Serious: No
  Sender: FDA-Public Use
  Company Number: US-ABBVIE-13P-163-1078692-00

PATIENT
  Age: 49 Year
  Sex: Male

DRUGS (10)
  1. HUMIRA [Suspect]
     Indication: PSORIASIS
     Dates: start: 20130131
  2. VICODIN [Concomitant]
     Indication: BACK PAIN
     Dosage: 5/500 MG AS NEEDED
  3. VICODIN [Concomitant]
     Indication: ARTHRALGIA
  4. FLEXERIL [Concomitant]
     Indication: MUSCLE RELAXANT THERAPY
  5. TOPROL [Concomitant]
     Indication: HYPERTENSION
     Dosage: 25 MG DAILY
  6. NEXIUM [Concomitant]
     Indication: GASTROOESOPHAGEAL REFLUX DISEASE
     Dosage: 40 MG DAILY
  7. GABAPENTIN [Concomitant]
     Indication: NERVOUSNESS
     Dosage: 1 PILL IN MORNING AND 2 PILLS AT NIGHT
  8. PLAVIX [Concomitant]
     Indication: THROMBOSIS PROPHYLAXIS
     Dosage: 75 MG DAILY
  9. CITALOPRAM [Concomitant]
     Indication: PRODUCT USED FOR UNKNOWN INDICATION
     Dosage: 20 MG AT BEDTIME (MY HAPPY PILL)
  10. ETODOLAC [Concomitant]
     Indication: ARTHRALGIA
     Dosage: 400 MG DAILY

REACTIONS (1)
  - Drug effect incomplete [Recovering/Resolving]
